FAERS Safety Report 4733506-6 (Version None)
Quarter: 2005Q3

REPORT INFORMATION
  Report Type: 
  Country: None (occurrence: None)
  Receive Date: 20050725
  Receipt Date: 20040713
  Transmission Date: 20060218
  Serious: Yes (Death)
  Sender: FDA-Public Use
  Company Number: USA-2003-0011259

PATIENT
  Age: 44 Year
  Sex: Female
  Weight: 73 kg

DRUGS (6)
  1. MORPHINE SULFATE [Suspect]
  2. MEPROBAMATE [Suspect]
  3. CLOMIPRAMINE HCL [Suspect]
  4. CARISOPRODOL [Suspect]
  5. DIAZEPAM [Suspect]
  6. CAFFEINE (CAFFEINE) [Suspect]

REACTIONS (2)
  - ACCIDENTAL OVERDOSE [None]
  - MULTIPLE DRUG OVERDOSE [None]
